FAERS Safety Report 6180359-8 (Version None)
Quarter: 2009Q2

REPORT INFORMATION
  Report Type: 
  Country: None (occurrence: None)
  Receive Date: 20090506
  Receipt Date: 20090424
  Transmission Date: 20091009
  Serious: Yes (Other)
  Sender: FDA-Public Use
  Company Number: US-PFIZER INC-2009159452

PATIENT
  Sex: Female
  Weight: 54.431 kg

DRUGS (21)
  1. CHANTIX [Suspect]
     Dosage: 1 MG, 2X/DAY
     Dates: start: 20080101, end: 20090118
  2. FLEXERIL [Concomitant]
     Dosage: UNK
  3. KLONOPIN [Concomitant]
     Dosage: UNK
  4. COMPAZINE [Concomitant]
     Dosage: UNK
  5. SYNTHROID [Concomitant]
     Dosage: UNK
  6. LORTAB [Concomitant]
  7. AMANTADINE [Concomitant]
     Dosage: UNK
  8. FOLIC ACID [Concomitant]
     Dosage: UNK
  9. ZANAFLEX [Concomitant]
     Dosage: UNK
  10. FOSAMAX [Concomitant]
     Dosage: UNK
  11. METHOTREXATE [Concomitant]
     Dosage: UNK
  12. DEXTROSE [Concomitant]
     Dosage: UNK
  13. SOLU-MEDROL [Concomitant]
     Dosage: UNK
  14. COPAXONE [Concomitant]
     Dosage: UNK
  15. CALCIUM WITH VITAMIN D [Concomitant]
     Dosage: UNK
  16. FLONASE [Concomitant]
  17. OXYBUTYNIN HYDROCHLORIDE [Concomitant]
     Dosage: UNK
  18. LISINOPRIL [Concomitant]
     Dosage: UNK
  19. LEXAPRO [Suspect]
     Dosage: UNK
  20. MECLIZINE [Suspect]
     Dosage: UNK
  21. ENSURE [Suspect]
     Dosage: UNK

REACTIONS (2)
  - ABNORMAL DREAMS [None]
  - AGGRESSION [None]
